FAERS Safety Report 9778575 (Version 1)
Quarter: 2013Q4

REPORT INFORMATION
  Report Type: Spontaneous
  Country: US (occurrence: US)
  Receive Date: 20131223
  Receipt Date: 20131223
  Transmission Date: 20140711
  Serious: Yes (Death)
  Sender: FDA-Public Use
  Company Number: CHPA2013US018681

PATIENT
  Sex: Male

DRUGS (2)
  1. KERI UNKNOWN [Suspect]
     Indication: PRURITUS
     Route: 061
  2. KERI UNKNOWN [Suspect]
     Indication: OFF LABEL USE

REACTIONS (1)
  - Death [Fatal]
